FAERS Safety Report 5269333-3 (Version None)
Quarter: 2007Q1

REPORT INFORMATION
  Report Type: 
  Country: None (occurrence: None)
  Receive Date: 20070319
  Receipt Date: 20070307
  Transmission Date: 20070707
  Serious: Yes (Other)
  Sender: FDA-Public Use
  Company Number: US-PFIZER INC-2007018143

PATIENT
  Sex: Female
  Weight: 61.2 kg

DRUGS (1)
  1. CELEBREX [Suspect]
     Indication: ARTHRITIS
     Dates: start: 20020101, end: 20040101

REACTIONS (7)
  - BLADDER DISORDER [None]
  - CARDIAC FLUTTER [None]
  - GASTRIC DISORDER [None]
  - HEART RATE DECREASED [None]
  - HYPOTENSION [None]
  - MUSCULOSKELETAL PAIN [None]
  - ULCER [None]
